FAERS Safety Report 6445109-6 (Version None)
Quarter: 2009Q4

REPORT INFORMATION
  Report Type: 
  Country: None (occurrence: None)
  Receive Date: 20091116
  Receipt Date: 20091116
  Transmission Date: 20100525
  Serious: Yes (Hospitalization)
  Sender: FDA-Public Use
  Company Number: None

PATIENT
  Age: 72 Year
  Sex: Male
  Weight: 58.6 kg

DRUGS (2)
  1. DIGOXIN [Suspect]
     Dosage: 1 TAB EVERY DAY PO
     Route: 048
     Dates: start: 20070101, end: 20090402
  2. DILTIAZEM [Suspect]
     Dosage: 1 TAB BID PO
     Route: 048
     Dates: start: 20070101, end: 20090402

REACTIONS (3)
  - ANGINA PECTORIS [None]
  - BRADYCARDIA [None]
  - CARDIOACTIVE DRUG LEVEL INCREASED [None]
